FAERS Safety Report 7709358-9 (Version None)
Quarter: 2011Q3

REPORT INFORMATION
  Report Type: 
  Country: None (occurrence: None)
  Receive Date: 20110819
  Receipt Date: 20110810
  Transmission Date: 20111222
  Serious: Yes (Other)
  Sender: FDA-Public Use
  Company Number: 2011SP038136

PATIENT
  Age: 49 Year
  Sex: Male

DRUGS (1)
  1. SYCREST (ASENAPINE /05706901/) [Suspect]
     Indication: PRODUCT USED FOR UNKNOWN INDICATION
     Dosage: 5 MG;ONCE

REACTIONS (7)
  - BURNING SENSATION [None]
  - FATIGUE [None]
  - DISORIENTATION [None]
  - DYSARTHRIA [None]
  - GAIT DISTURBANCE [None]
  - HYPERSOMNIA [None]
  - IMPAIRED WORK ABILITY [None]
